FAERS Safety Report 4865006-7 (Version None)
Quarter: 2005Q4

REPORT INFORMATION
  Report Type: 
  Country: None (occurrence: None)
  Receive Date: 20051223
  Receipt Date: 20051214
  Transmission Date: 20060501
  Serious: Yes (Hospitalization)
  Sender: FDA-Public Use
  Company Number: PHBS2005US18476

PATIENT
  Age: 78 Year
  Sex: Male

DRUGS (1)
  1. METHYLPHENIDATE HCL [Suspect]
     Indication: DEPRESSION
     Dosage: 5 MG, BID
     Route: 065

REACTIONS (1)
  - VENTRICULAR TACHYCARDIA [None]
